FAERS Safety Report 6687593-9 (Version None)
Quarter: 2010Q2

REPORT INFORMATION
  Report Type: 
  Country: None (occurrence: None)
  Receive Date: 20100416
  Receipt Date: 20100416
  Transmission Date: 20101027
  Serious: Yes (Other)
  Sender: FDA-Public Use
  Company Number: None

PATIENT
  Age: 20 Year
  Sex: Female
  Weight: 78.4723 kg

DRUGS (4)
  1. SEPTRA DS [Suspect]
     Indication: ABSCESS
     Dates: start: 20091212, end: 20091212
  2. VICODIN [Suspect]
  3. IBUPROFIN [Concomitant]
  4. AMOXICILLIN [Concomitant]

REACTIONS (2)
  - PRURITUS [None]
  - URTICARIA [None]
